FAERS Safety Report 22536615 (Version 1)
Quarter: 2023Q2

REPORT INFORMATION
  Report Type: Report from Study
  Country: US (occurrence: US)
  Receive Date: 20230608
  Receipt Date: 20230608
  Transmission Date: 20230722
  Serious: Yes (Other)
  Sender: FDA-Public Use
  Company Number: US-SUN PHARMACEUTICAL INDUSTRIES LTD-2023R1-393395

PATIENT
  Age: 73 Year
  Sex: Female

DRUGS (2)
  1. LOTEPREDNOL [Suspect]
     Active Substance: LOTEPREDNOL
     Indication: Ocular surface disease
     Dosage: UNK
     Route: 065
  2. TOBRAMYCIN [Suspect]
     Active Substance: TOBRAMYCIN
     Indication: Ocular surface disease
     Dosage: UNK
     Route: 065

REACTIONS (1)
  - Therapy non-responder [Unknown]
